FAERS Safety Report 9217420 (Version 2)
Quarter: 2013Q2

REPORT INFORMATION
  Report Type: Report from Study
  Country: CA (occurrence: CA)
  Receive Date: 20130408
  Receipt Date: 20130408
  Transmission Date: 20140414
  Serious: Yes (Other)
  Sender: FDA-Public Use
  Company Number: CA-UCBSA-8047158

PATIENT
  Age: 34 Year
  Sex: Female
  Weight: 38 kg

DRUGS (6)
  1. CDP870 [Suspect]
     Indication: CROHN^S DISEASE
     Dosage: CDP87085
     Route: 058
  2. CDP870 [Suspect]
     Indication: CROHN^S DISEASE
     Route: 058
     Dates: start: 20081229, end: 20081229
  3. FLAGYL [Concomitant]
     Indication: CROHN^S DISEASE
     Route: 048
     Dates: start: 20080908
  4. PREDNISONE [Concomitant]
     Indication: CROHN^S DISEASE
     Route: 048
     Dates: start: 20090109, end: 20090406
  5. PREDNISONE [Concomitant]
     Indication: CROHN^S DISEASE
     Route: 048
     Dates: start: 20090407, end: 20090420
  6. PREDNISONE [Concomitant]
     Indication: CROHN^S DISEASE
     Route: 048
     Dates: start: 20090421

REACTIONS (2)
  - Demyelinating polyneuropathy [Recovered/Resolved]
  - Gait disturbance [None]
